FAERS Safety Report 14039814 (Version 1)
Quarter: 2017Q4

REPORT INFORMATION
  Report Type: Spontaneous
  Country: US (occurrence: US)
  Receive Date: 20171004
  Receipt Date: 20171004
  Transmission Date: 20180321
  Serious: Yes (Disabling, Other)
  Sender: FDA-Public Use
  Company Number: US-REGENERON PHARMACEUTICALS, INC.-2017-20658

PATIENT

DRUGS (2)
  1. EYLEA [Suspect]
     Active Substance: AFLIBERCEPT
     Dosage: 2 MG,EVERY 4 WEEKS  LEFT EYE, LAST DOSE
     Route: 031
     Dates: start: 20170818, end: 20170818
  2. EYLEA [Suspect]
     Active Substance: AFLIBERCEPT
     Indication: NEOVASCULAR AGE-RELATED MACULAR DEGENERATION
     Dosage: 2 MG,EVERY 4 WEEKS  LEFT EYE
     Route: 031
     Dates: start: 20160119

REACTIONS (6)
  - Vitreous haze [Recovering/Resolving]
  - Corneal striae [Unknown]
  - Vitreal cells [Recovered/Resolved]
  - Blindness unilateral [Unknown]
  - Eye inflammation [Recovered/Resolved]
  - Intraocular pressure increased [Recovering/Resolving]

NARRATIVE: CASE EVENT DATE: 20170818
